FAERS Safety Report 4351464-3 (Version None)
Quarter: 2004Q2

REPORT INFORMATION
  Report Type: 
  Country: None (occurrence: None)
  Receive Date: 20040420
  Receipt Date: 20040420
  Transmission Date: 20050107
  Serious: Yes (Other)
  Sender: FDA-Public Use
  Company Number: None

PATIENT
  Age: 89 Year
  Sex: Female

DRUGS (2)
  1. MIDODRINE HCL [Suspect]
     Indication: SYNCOPE VASOVAGAL
     Dosage: 10 MG DAILY FROM 16OCT2003 TO 02FEB2004
     Route: 048
     Dates: start: 20031211, end: 20040202
  2. FLORINEF [Concomitant]

REACTIONS (3)
  - DELUSION [None]
  - DISORIENTATION [None]
  - HALLUCINATION [None]
